FAERS Safety Report 24439275 (Version 1)
Quarter: 2024Q4

REPORT INFORMATION
  Report Type: Spontaneous
  Country: TR (occurrence: TR)
  Receive Date: 20241015
  Receipt Date: 20241015
  Transmission Date: 20250114
  Serious: Yes (Other)
  Sender: NOVARTIS
  Company Number: TR-002147023-NVSC2024TR200152

PATIENT
  Age: 69 Year
  Sex: Female

DRUGS (4)
  1. MIDOSTAURIN [Suspect]
     Active Substance: MIDOSTAURIN
     Indication: Systemic mastocytosis
     Dosage: 2X100 MG/ DAY
     Route: 065
  2. MIDOSTAURIN [Suspect]
     Active Substance: MIDOSTAURIN
     Indication: Haematological neoplasm
  3. RITUXIMAB [Suspect]
     Active Substance: RITUXIMAB
     Indication: Systemic mastocytosis
     Dosage: 375 MG/M2 PER-WEEK
     Route: 065
  4. RITUXIMAB [Suspect]
     Active Substance: RITUXIMAB
     Indication: Haematological neoplasm

REACTIONS (2)
  - Loss of consciousness [Unknown]
  - Dizziness [Unknown]
